FAERS Safety Report 20079901 (Version 1)
Quarter: 2021Q4

REPORT INFORMATION
  Report Type: Spontaneous
  Country: CA (occurrence: CA)
  Receive Date: 20211117
  Receipt Date: 20211117
  Transmission Date: 20220303
  Serious: Yes (Other)
  Sender: FDA-Public Use
  Company Number: CA-SA-SAC20211116000187

PATIENT
  Age: 56 Year
  Sex: Female

DRUGS (1)
  1. ZANTAC [Suspect]
     Active Substance: RANITIDINE HYDROCHLORIDE
     Indication: Gastrooesophageal reflux disease
     Dosage: UNK UNK, QD
     Route: 048
     Dates: start: 2015, end: 2019

REACTIONS (5)
  - Rectal haemorrhage [Unknown]
  - Decreased immune responsiveness [Unknown]
  - Polyp [Unknown]
  - Renal pain [Unknown]
  - Weight decreased [Unknown]
